FAERS Safety Report 13787220 (Version 2)
Quarter: 2018Q1

REPORT INFORMATION
  Report Type: Spontaneous
  Country: US (occurrence: US)
  Receive Date: 20170725
  Receipt Date: 20180125
  Transmission Date: 20180508
  Serious: No
  Sender: FDA-Public Use
  Company Number: US-UNITED THERAPEUTICS-UNT-2017-004114

PATIENT
  Age: 76 Year
  Sex: Female
  Weight: 56.69 kg

DRUGS (21)
  1. LETAIRIS [Suspect]
     Active Substance: AMBRISENTAN
     Indication: PRODUCT USED FOR UNKNOWN INDICATION
     Dosage: 10 MG, QD
     Route: 065
     Dates: start: 20140807
  2. MERACOTE                           /00480201/ [Concomitant]
     Indication: PRODUCT USED FOR UNKNOWN INDICATION
  3. LASIX [Concomitant]
     Active Substance: FUROSEMIDE
     Indication: PRODUCT USED FOR UNKNOWN INDICATION
  4. ORENITRAM [Suspect]
     Active Substance: TREPROSTINIL
     Dosage: 0.5 MG, IN MORNING
     Route: 048
     Dates: start: 20170316
  5. ORENITRAM [Suspect]
     Active Substance: TREPROSTINIL
     Dosage: 0.375 MG, BID
     Route: 048
     Dates: start: 20170727
  6. ORENITRAM [Suspect]
     Active Substance: TREPROSTINIL
     Dosage: 0.375 MG, AT NIGHT
     Route: 048
     Dates: start: 20170316
  7. SILDENAFIL. [Suspect]
     Active Substance: SILDENAFIL
     Indication: PRODUCT USED FOR UNKNOWN INDICATION
     Dosage: UNK
     Route: 065
  8. ORENITRAM [Suspect]
     Active Substance: TREPROSTINIL
     Indication: PULMONARY ARTERIAL HYPERTENSION
     Dosage: 0.825 MG, DAILY
     Route: 048
     Dates: start: 20160901
  9. LETAIRIS [Suspect]
     Active Substance: AMBRISENTAN
     Dosage: UNK
     Route: 065
  10. INSULIN [Concomitant]
     Active Substance: INSULIN NOS
     Indication: PRODUCT USED FOR UNKNOWN INDICATION
  11. ORENITRAM [Suspect]
     Active Substance: TREPROSTINIL
     Dosage: 0.5 MG IN AM AND 0.375 MG PM
     Route: 048
  12. ORENITRAM [Suspect]
     Active Substance: TREPROSTINIL
     Dosage: 0.25 MG, BID
     Route: 048
     Dates: start: 201708
  13. ZANTAC [Concomitant]
     Active Substance: RANITIDINE HYDROCHLORIDE
     Indication: PRODUCT USED FOR UNKNOWN INDICATION
  14. ALDACTIN [Concomitant]
     Indication: PRODUCT USED FOR UNKNOWN INDICATION
  15. ADEMPAS [Suspect]
     Active Substance: RIOCIGUAT
     Indication: PRODUCT USED FOR UNKNOWN INDICATION
     Dosage: UNK
     Route: 048
  16. LETAIRIS [Suspect]
     Active Substance: AMBRISENTAN
     Dosage: UNK
     Route: 065
  17. LOVASTATIN. [Suspect]
     Active Substance: LOVASTATIN
     Indication: PRODUCT USED FOR UNKNOWN INDICATION
     Route: 065
  18. AMLODIPINE [Concomitant]
     Active Substance: AMLODIPINE BESYLATE
     Indication: PRODUCT USED FOR UNKNOWN INDICATION
  19. ORENITRAM [Suspect]
     Active Substance: TREPROSTINIL
     Dosage: UNK
     Route: 048
  20. ORENITRAM [Suspect]
     Active Substance: TREPROSTINIL
     Dosage: 0.5 MG, BID
     Route: 048
  21. PROSTEROL [Concomitant]
     Indication: PRODUCT USED FOR UNKNOWN INDICATION

REACTIONS (11)
  - Arthralgia [Not Recovered/Not Resolved]
  - Gait disturbance [Not Recovered/Not Resolved]
  - Joint stiffness [Unknown]
  - Pulmonary arterial pressure increased [Unknown]
  - Epistaxis [Unknown]
  - Musculoskeletal stiffness [Not Recovered/Not Resolved]
  - Respiratory tract congestion [Not Recovered/Not Resolved]
  - Arthritis [Unknown]
  - Back pain [Not Recovered/Not Resolved]
  - Pain [Not Recovered/Not Resolved]
  - Syncope [Unknown]

NARRATIVE: CASE EVENT DATE: 20170319
